FAERS Safety Report 9060136 (Version 2)
Quarter: 2013Q1

REPORT INFORMATION
  Report Type: Spontaneous
  Country: JP (occurrence: JP)
  Receive Date: 20130212
  Receipt Date: 20130306
  Transmission Date: 20140127
  Serious: Yes (Other)
  Sender: FDA-Public Use
  Company Number: PHHY2013JP009325

PATIENT
  Age: 41 None
  Sex: Male
  Weight: 120 kg

DRUGS (7)
  1. TEGRETOL [Suspect]
     Indication: EPILEPSY
     Dosage: 600 MG, DAILY
     Route: 048
     Dates: start: 20090128, end: 20090202
  2. TEGRETOL [Suspect]
     Dosage: 300 MG, DAILY
     Route: 048
     Dates: start: 20090203, end: 20090205
  3. TEGRETOL [Suspect]
     Dosage: 150 MG, DAILY
     Route: 048
     Dates: start: 20090206, end: 20090220
  4. ZONISAMIDE [Suspect]
     Indication: EPILEPSY
  5. TOPIRAMATE [Suspect]
     Indication: EPILEPSY
  6. LAMOTRIGINE [Suspect]
     Indication: EPILEPSY
  7. PICLODIN [Suspect]
     Indication: CEREBRAL INFARCTION
     Dosage: 200 MG, DAILY
     Dates: start: 199702, end: 20090202

REACTIONS (7)
  - Depressed level of consciousness [Unknown]
  - Pancytopenia [Recovering/Resolving]
  - Drug eruption [Recovered/Resolved]
  - Eczema [Recovered/Resolved]
  - Hypokinesia [Unknown]
  - Hypoaesthesia [Unknown]
  - Depression [Unknown]
